FAERS Safety Report 15164045 (Version 2)
Quarter: 2018Q3

REPORT INFORMATION
  Report Type: Spontaneous
  Country: SK (occurrence: SK)
  Receive Date: 20180719
  Receipt Date: 20180809
  Transmission Date: 20181010
  Serious: Yes (Life-Threatening)
  Sender: FDA-Public Use
  Company Number: SK-ROCHE-2156988

PATIENT
  Age: 4 Year
  Sex: Male

DRUGS (7)
  1. DIAZEPAM. [Interacting]
     Active Substance: DIAZEPAM
     Indication: MUSCLE SPASMS
  2. MIDAZOLAM [Interacting]
     Active Substance: MIDAZOLAM HYDROCHLORIDE
     Indication: TETANUS
     Route: 065
  3. MIDAZOLAM [Interacting]
     Active Substance: MIDAZOLAM HYDROCHLORIDE
     Indication: MUSCLE SPASMS
  4. CLINDAMYCIN. [Suspect]
     Active Substance: CLINDAMYCIN
     Indication: TETANUS
     Route: 065
  5. TRAMADOL. [Interacting]
     Active Substance: TRAMADOL
     Indication: MUSCLE SPASMS
  6. DIAZEPAM. [Suspect]
     Active Substance: DIAZEPAM
     Indication: TETANUS
     Route: 065
  7. TRAMADOL. [Interacting]
     Active Substance: TRAMADOL
     Indication: TETANUS
     Route: 065

REACTIONS (2)
  - Drug interaction [Unknown]
  - Respiratory failure [Recovered/Resolved]
